FAERS Safety Report 9027793 (Version 2)
Quarter: 2013Q3

REPORT INFORMATION
  Report Type: Report from Study
  Country: CA (occurrence: CA)
  Receive Date: 20130124
  Receipt Date: 20130827
  Transmission Date: 20140515
  Serious: Yes (Death, Other)
  Sender: FDA-Public Use
  Company Number: CA-JNJFOC-20130107197

PATIENT
  Age: 64 Year
  Sex: Male
  Weight: 69 kg

DRUGS (6)
  1. REMICADE [Suspect]
     Indication: CROHN^S DISEASE
     Route: 042
     Dates: start: 20100422, end: 20121119
  2. LIPITOR [Concomitant]
     Route: 048
  3. FOLIC ACID [Concomitant]
     Route: 065
  4. PANTOPRAZOLE [Concomitant]
     Route: 048
  5. RAMIPRIL [Concomitant]
     Route: 048
  6. VITAMIN [Concomitant]
     Route: 065

REACTIONS (1)
  - Brain neoplasm [Fatal]
